FAERS Safety Report 10076204 (Version 1)
Quarter: 2014Q2

REPORT INFORMATION
  Report Type: Spontaneous
  Country: NL (occurrence: NL)
  Receive Date: 20140414
  Receipt Date: 20140414
  Transmission Date: 20141212
  Serious: Yes (Other)
  Sender: FDA-Public Use
  Company Number: NL-ACTAVIS-2014-06900

PATIENT
  Age: 53 Year
  Sex: Male

DRUGS (21)
  1. COLCHICINE [Concomitant]
     Indication: PRODUCT USED FOR UNKNOWN INDICATION
     Dosage: UNK
     Route: 065
  2. LOPERAMIDE [Concomitant]
     Indication: PRODUCT USED FOR UNKNOWN INDICATION
     Dosage: UNK
     Route: 065
  3. TIOTROPIUM [Concomitant]
     Indication: PRODUCT USED FOR UNKNOWN INDICATION
     Dosage: UNK
     Route: 045
  4. FORMOTEROL [Concomitant]
     Indication: PRODUCT USED FOR UNKNOWN INDICATION
     Dosage: UNK
     Route: 045
  5. CICLESONIDE [Concomitant]
     Indication: PRODUCT USED FOR UNKNOWN INDICATION
     Dosage: UNK
     Route: 065
  6. GENTAMICIN [Concomitant]
     Indication: ENDOCARDITIS
     Dosage: 200 MG, UNKNOWN
     Route: 065
  7. RIFAMPICIN (UNKNOWN) [Suspect]
     Indication: ENDOCARDITIS
     Dosage: 600 MG, BID
     Route: 042
  8. RIFAMPICIN (UNKNOWN) [Interacting]
     Indication: STAPHYLOCOCCAL BACTERAEMIA
  9. CYCLOSPORINE (UNKNOWN) [Interacting]
     Indication: PROPHYLAXIS AGAINST TRANSPLANT REJECTION
     Dosage: 100 MG, BID
     Route: 065
  10. CYCLOSPORINE (UNKNOWN) [Interacting]
     Dosage: 200 MG, BID
     Route: 065
  11. CYCLOSPORINE (UNKNOWN) [Interacting]
     Dosage: 250 MG, BID
     Route: 065
  12. FLUCLOXACILLIN                     /00239102/ [Concomitant]
     Indication: ENDOCARDITIS
     Dosage: 2 G, Q4H
     Route: 042
  13. FLUCLOXACILLIN                     /00239102/ [Concomitant]
     Indication: STAPHYLOCOCCAL BACTERAEMIA
  14. PREDNISOLONE [Concomitant]
     Indication: PROPHYLAXIS AGAINST TRANSPLANT REJECTION
     Dosage: 10 MG, DAILY
     Route: 065
  15. ACENOCOUMAROL [Concomitant]
     Indication: PRODUCT USED FOR UNKNOWN INDICATION
     Dosage: UNK
     Route: 065
  16. METOPROLOL [Concomitant]
     Indication: PRODUCT USED FOR UNKNOWN INDICATION
     Dosage: UNK
     Route: 065
  17. NIFEDIPINE [Concomitant]
     Indication: PRODUCT USED FOR UNKNOWN INDICATION
     Dosage: UNK
     Route: 065
  18. IRBESARTAN [Concomitant]
     Indication: PRODUCT USED FOR UNKNOWN INDICATION
     Dosage: UNK
     Route: 065
  19. PRAVASTATIN [Concomitant]
     Indication: PRODUCT USED FOR UNKNOWN INDICATION
     Dosage: UNK
     Route: 065
  20. PANTOPRAZOL [Concomitant]
     Indication: PRODUCT USED FOR UNKNOWN INDICATION
     Dosage: UNK
     Route: 065
  21. ALLOPURINOL [Concomitant]
     Indication: PRODUCT USED FOR UNKNOWN INDICATION
     Dosage: UNK
     Route: 065

REACTIONS (2)
  - Drug level below therapeutic [Recovered/Resolved]
  - Drug interaction [Unknown]
